FAERS Safety Report 5330442-1 (Version None)
Quarter: 2007Q2

REPORT INFORMATION
  Report Type: 
  Country: None (occurrence: None)
  Receive Date: 20070515
  Receipt Date: 20070508
  Transmission Date: 20071010
  Serious: Yes (Other)
  Sender: FDA-Public Use
  Company Number: 230001M07TWN

PATIENT
  Age: 51 Year
  Sex: Male
  Weight: 50 kg

DRUGS (1)
  1. REBIF [Suspect]
     Indication: MULTIPLE SCLEROSIS
     Dosage: 3 IN 1 WEEKS
     Dates: start: 20030101

REACTIONS (4)
  - LYMPHADENOPATHY [None]
  - MULTIPLE SCLEROSIS RELAPSE [None]
  - PAPILLARY THYROID CANCER [None]
  - RECURRENT CANCER [None]
